FAERS Safety Report 13696325 (Version 1)
Quarter: 2017Q2

REPORT INFORMATION
  Report Type: Spontaneous
  Country: SE (occurrence: SE)
  Receive Date: 20170628
  Receipt Date: 20170628
  Transmission Date: 20170830
  Serious: Yes (Death, Hospitalization, Other)
  Sender: FDA-Public Use
  Company Number: SE-CIPLA LTD.-2017SE11080

PATIENT

DRUGS (7)
  1. ESCITALOPRAM [Suspect]
     Active Substance: ESCITALOPRAM OXALATE
     Dosage: 20 MG, QD
     Route: 065
  2. ASPIRIN. [Suspect]
     Active Substance: ASPIRIN
     Dosage: 75 MG, QD
     Route: 065
  3. MIRTAZAPINE. [Suspect]
     Active Substance: MIRTAZAPINE
     Dosage: 15 MG, QD
     Route: 065
  4. DIMETHICONE. [Suspect]
     Active Substance: DIMETHICONE
     Dosage: 200 MG, TID
     Route: 065
  5. ETILEFRINE [Suspect]
     Active Substance: ETILEFRINE
     Dosage: 5 MG, TID
     Route: 065
  6. RIVASTIGMINE. [Suspect]
     Active Substance: RIVASTIGMINE
     Indication: DEMENTIA
     Dosage: 9.5 MG, PER 24 H, PATCH
     Route: 062
  7. ALPRAZOLAM. [Suspect]
     Active Substance: ALPRAZOLAM
     Dosage: 0.5 MG, QD
     Route: 065

REACTIONS (12)
  - Drug administration error [Unknown]
  - Dizziness [Unknown]
  - Nausea [None]
  - Renal tubular necrosis [Fatal]
  - Vomiting [Unknown]
  - Confusional state [Unknown]
  - Dehydration [Unknown]
  - Wound [Unknown]
  - Accidental overdose [Fatal]
  - Bradycardia [Unknown]
  - Blood pressure increased [None]
  - Urinary tract infection [Unknown]
